FAERS Safety Report 21633135 (Version 1)
Quarter: 2022Q4

REPORT INFORMATION
  Report Type: Report from Study
  Country: JP (occurrence: JP)
  Receive Date: 20221123
  Receipt Date: 20221123
  Transmission Date: 20230113
  Serious: Yes (Hospitalization)
  Sender: FDA-Public Use
  Company Number: JP-PFIZER INC-PV202200086587

PATIENT
  Age: 59 Year
  Sex: Male
  Weight: 74.1 kg

DRUGS (4)
  1. TALAZOPARIB [Suspect]
     Active Substance: TALAZOPARIB
     Indication: Prostate cancer metastatic
     Dosage: UNK, 1X/DAY
     Route: 048
     Dates: start: 20220601, end: 20221017
  2. ENZALUTAMIDE [Suspect]
     Active Substance: ENZALUTAMIDE
     Indication: Prostate cancer metastatic
     Dosage: 160 MG, 1X/DAY
     Route: 048
     Dates: start: 20220601, end: 20221017
  3. METHYLCOBALAMIN [Concomitant]
     Active Substance: METHYLCOBALAMIN
     Indication: Osteoarthritis
     Dosage: 500 UG, 4X/DAY
     Route: 048
     Dates: start: 20220626
  4. DIFLUCORTOLONE VALERATE [Concomitant]
     Active Substance: DIFLUCORTOLONE VALERATE
     Indication: Intervertebral disc protrusion
     Dosage: 2X/DAY
     Route: 061
     Dates: start: 20220721

REACTIONS (1)
  - Osteomyelitis [Recovering/Resolving]

NARRATIVE: CASE EVENT DATE: 20221015
